FAERS Safety Report 19782224 (Version 1)
Quarter: 2021Q3

REPORT INFORMATION
  Report Type: Other
  Country: CA (occurrence: CA)
  Receive Date: 20210903
  Receipt Date: 20210903
  Transmission Date: 20211014
  Serious: Yes (Hospitalization, Other)
  Sender: FDA-Public Use
  Company Number: CA-APOTEX-2021AP039897

PATIENT
  Age: 27 Year
  Sex: Female

DRUGS (4)
  1. ACETAMINOPHEN TABLETS USP 500 MG [Suspect]
     Active Substance: ACETAMINOPHEN
     Indication: ANALGESIC THERAPY
     Dosage: UNK
     Route: 048
  2. ACETAMINOPHEN TABLETS USP 500 MG [Suspect]
     Active Substance: ACETAMINOPHEN
     Indication: ACCIDENTAL OVERDOSE
  3. ACETAMINOPHEN. [Suspect]
     Active Substance: ACETAMINOPHEN
     Indication: ANALGESIC THERAPY
     Dosage: UNK
     Route: 048
  4. ACETAMINOPHEN. [Suspect]
     Active Substance: ACETAMINOPHEN
     Indication: ACCIDENTAL OVERDOSE

REACTIONS (8)
  - Acute kidney injury [Recovered/Resolved]
  - Hepatic encephalopathy [Recovered/Resolved]
  - Liver injury [Recovered/Resolved]
  - Abdominal tenderness [Recovered/Resolved]
  - Liver transplant [Recovered/Resolved]
  - Brain oedema [Recovered/Resolved]
  - Gastrointestinal wall thickening [Recovered/Resolved]
  - Intracranial pressure increased [Recovered/Resolved]
